FAERS Safety Report 25718984 (Version 1)
Quarter: 2025Q3

REPORT INFORMATION
  Report Type: Spontaneous
  Country: SA (occurrence: SA)
  Receive Date: 20250824
  Receipt Date: 20250824
  Transmission Date: 20251020
  Serious: Yes (Other)
  Sender: NEXUS PHARMACEUTICALS
  Company Number: SA-Nexus Pharma-000452

PATIENT
  Age: 20 Year
  Sex: Female

DRUGS (2)
  1. LEVETIRACETAM [Suspect]
     Active Substance: LEVETIRACETAM
     Indication: Epilepsy
     Dosage: INITIATED AT A DOSE OF 250 MG TWICE A DAY AND SUBSEQUENTLY TITRATED TO 750 MG TWICE A DAY
  2. LEVETIRACETAM [Suspect]
     Active Substance: LEVETIRACETAM
     Indication: Epilepsy
     Dosage: INITIATED AT A DOSE OF 250 MG TWICE A DAY AND SUBSEQUENTLY TITRATED TO 750 MG TWICE A DAY

REACTIONS (1)
  - Gingival hypertrophy [Unknown]
